FAERS Safety Report 6078051-3 (Version None)
Quarter: 2009Q1

REPORT INFORMATION
  Report Type: 
  Country: None (occurrence: None)
  Receive Date: 20090213
  Receipt Date: 20090203
  Transmission Date: 20090719
  Serious: Yes (Other)
  Sender: FDA-Public Use
  Company Number: FR-PFIZER INC-2009165839

PATIENT

DRUGS (3)
  1. ZYVOXID [Suspect]
     Dates: start: 20090126, end: 20090201
  2. VANCOMYCIN HYDROCHLORIDE [Concomitant]
  3. GENTAMICIN [Concomitant]

REACTIONS (1)
  - RENAL FAILURE [None]
